FAERS Safety Report 4269519-0 (Version None)
Quarter: 2004Q1

REPORT INFORMATION
  Report Type: 
  Country: None (occurrence: None)
  Receive Date: 20040112
  Receipt Date: 20040112
  Transmission Date: 20041129
  Serious: Yes (Hospitalization)
  Sender: FDA-Public Use
  Company Number: None

PATIENT
  Age: 82 Year
  Sex: Male

DRUGS (8)
  1. METOPROLOL [Suspect]
     Indication: HYPERTENSION
     Dosage: 12.5 MG BID
     Dates: start: 20030101
  2. SPIRONOLACTONE [Suspect]
     Indication: HYPERTENSION
     Dosage: 25 MG QD
     Dates: start: 20030201
  3. FUROSEMIDE [Concomitant]
  4. MAG OXIDE [Concomitant]
  5. FOSINOPRIL SODIUM [Concomitant]
  6. LOPERAMIDE HCL [Concomitant]
  7. LORATADINE [Concomitant]
  8. FINASTERIDE [Concomitant]

REACTIONS (1)
  - HYPOTENSION [None]
